FAERS Safety Report 12389128 (Version 3)
Quarter: 2016Q2

REPORT INFORMATION
  Report Type: Spontaneous
  Country: US (occurrence: US)
  Receive Date: 20160520
  Receipt Date: 20160610
  Transmission Date: 20160815
  Serious: Yes (Other)
  Sender: FDA-Public Use
  Company Number: US-TOLMAR INC.-1052538

PATIENT
  Age: 53 Year
  Sex: Male
  Weight: 81.82 kg

DRUGS (2)
  1. SODIUM SULFACETAMIDE - SULFUR WASH [Concomitant]
     Active Substance: SULFACETAMIDE\SULFUR
     Route: 061
  2. METRONIDAZOLE GEL USP, 1% [Suspect]
     Active Substance: METRONIDAZOLE
     Indication: ROSACEA
     Route: 061
     Dates: start: 201603

REACTIONS (3)
  - Product contamination [Unknown]
  - Impetigo [Recovered/Resolved]
  - Rosacea [None]

NARRATIVE: CASE EVENT DATE: 201603
